FAERS Safety Report 7333466-8 (Version None)
Quarter: 2011Q1

REPORT INFORMATION
  Report Type: 
  Country: None (occurrence: None)
  Receive Date: 20110304
  Receipt Date: 20110302
  Transmission Date: 20110831
  Serious: Yes (Other)
  Sender: FDA-Public Use
  Company Number: GB-AMGEN-GBRSP2011008083

PATIENT
  Age: 77 Year
  Sex: Female

DRUGS (4)
  1. ASACOL [Concomitant]
     Route: 048
  2. ZANIDIP [Concomitant]
     Route: 048
  3. PROLIA [Suspect]
     Indication: OSTEOPOROSIS
     Dosage: 60 MG, Q6MO
     Route: 058
     Dates: start: 20101215
  4. CALCICHEW D3 [Concomitant]
     Route: 048

REACTIONS (1)
  - COLITIS ULCERATIVE [None]
